FAERS Safety Report 5612060-0 (Version None)
Quarter: 2008Q1

REPORT INFORMATION
  Report Type: 
  Country: None (occurrence: None)
  Receive Date: 20080128
  Receipt Date: 20080115
  Transmission Date: 20080703
  Serious: Yes (Hospitalization)
  Sender: FDA-Public Use
  Company Number: 8029319

PATIENT
  Age: 40 Year
  Sex: Male
  Weight: 90 kg

DRUGS (5)
  1. KEPPRA [Suspect]
     Indication: EPILEPSY
     Dosage: 1000 MG 2/D PO
     Route: 048
  2. HYDROCORTISONE [Concomitant]
  3. PANTOZOL [Concomitant]
  4. CIPRO [Concomitant]
  5. HEPARIN [Concomitant]

REACTIONS (1)
  - PULMONARY EMBOLISM [None]
